FAERS Safety Report 5454905-3 (Version None)
Quarter: 2007Q3

REPORT INFORMATION
  Report Type: 
  Country: None (occurrence: None)
  Receive Date: 20070917
  Receipt Date: 20061012
  Transmission Date: 20080115
  Serious: No
  Sender: FDA-Public Use
  Company Number: US-ASTRAZENECA-2006UW19895

PATIENT

DRUGS (2)
  1. SEROQUEL [Suspect]
     Route: 048
  2. ANTIBIOTIC [Suspect]

REACTIONS (2)
  - DRUG INTERACTION [None]
  - DYSPHAGIA [None]
